FAERS Safety Report 10421000 (Version 2)
Quarter: 2014Q3

REPORT INFORMATION
  Report Type: Spontaneous
  Country: AT (occurrence: None)
  Receive Date: 20140828
  Receipt Date: 20140903
  Transmission Date: 20150326
  Serious: Yes (Hospitalization)
  Sender: FDA-Public Use
  Company Number: FK201403411

PATIENT
  Age: 49 Year
  Sex: Female

DRUGS (3)
  1. FOLINIC ACID (FOLINIC ACID) [Concomitant]
  2. OXALIPLATIN. [Suspect]
     Active Substance: OXALIPLATIN
     Indication: COLON CANCER
     Dates: start: 200507, end: 200603
  3. FLUOROURACIL (FLUOROURACIL) [Concomitant]
     Active Substance: FLUOROURACIL

REACTIONS (8)
  - Portal hypertension [None]
  - Upper gastrointestinal haemorrhage [None]
  - Varices oesophageal [None]
  - Anaemia [None]
  - Thrombocytopenia [None]
  - Splenomegaly [None]
  - Nodular regenerative hyperplasia [None]
  - Ascites [None]
